FAERS Safety Report 10136333 (Version 1)
Quarter: 2014Q2

REPORT INFORMATION
  Report Type: Spontaneous
  Country: US (occurrence: None)
  Receive Date: 20140425
  Receipt Date: 20140425
  Transmission Date: 20141212
  Serious: No
  Sender: FDA-Public Use
  Company Number: SYM-2014-20086

PATIENT
  Age: 34 Year
  Sex: Male

DRUGS (15)
  1. METRONIDAZOLE (METRONIDAZOLE) [Suspect]
     Indication: PRODUCT USED FOR UNKNOWN INDICATION
     Route: 042
  2. CEFTAZIDIME (CEFTAZIDIME) [Suspect]
     Indication: ANTIBIOTIC THERAPY
  3. CEFEPIME HYDROCHLORIDE (CEFEPIME HYDROCHLORIDE) [Suspect]
     Indication: PRODUCT USED FOR UNKNOWN INDICATION
  4. KELFIPRIM [Suspect]
     Indication: ANTIBIOTIC THERAPY
     Dosage: 2 IN 1 D
  5. VANCOMYCIN (VANCOMYCIN) [Suspect]
     Indication: ANTIBIOTIC THERAPY
  6. COLISTIN [Suspect]
     Indication: ANTIBIOTIC THERAPY
  7. TOBRAMYCIN [Suspect]
     Indication: ANTIBIOTIC THERAPY
  8. ALBUTEROL (SALBUTAMOL) (SALBUTAMOL) [Concomitant]
  9. SALINE (SODIUM CHLORIDE) (SODIUM CHLORIDE) [Concomitant]
  10. CIPROFLOXACIN (CIPROFLOXACIN) [Concomitant]
  11. URSODIOL (URSODEOXYCHOLIC ACID) (URSODEOXYCHOLIC ACID) [Concomitant]
  12. PANCRELIIPSE (PANCRELIPASE) [Concomitant]
  13. NPH INSULIN (ISOPHANE INSULIN) (ISOPHANE INSULIN) [Concomitant]
  14. INSULINI LISPRO (INSULIN LISPRO) [Concomitant]
  15. ALENDRONATE SODIUM (ALENDRONATE SODIUM) [Concomitant]

REACTIONS (13)
  - Renal failure acute [None]
  - Bradycardia [None]
  - Cardiac arrest [None]
  - Megacolon [None]
  - Disseminated intravascular coagulation [None]
  - Clostridium difficile colitis [None]
  - Shock [None]
  - Abdominal distension [None]
  - Dyspnoea [None]
  - Lactic acidosis [None]
  - Hypovolaemia [None]
  - Clostridium difficile sepsis [None]
  - General physical health deterioration [None]
